FAERS Safety Report 8064169 (Version 2)
Quarter: 2013Q1

REPORT INFORMATION
  Report Type: Spontaneous
  Country: US (occurrence: US)
  Receive Date: 20110802
  Receipt Date: 20130128
  Transmission Date: 20140127
  Serious: No
  Sender: FDA-Public Use
  Company Number: US-B.I. PHARMACEUTICALS,INC./RIDGEFIELD-2011-BP-17742BP

PATIENT
  Age: 72 None
  Sex: Female

DRUGS (16)
  1. SPIRIVA HANDIHALER [Suspect]
     Indication: CHRONIC OBSTRUCTIVE PULMONARY DISEASE
     Dosage: 18 MCG
     Route: 055
     Dates: start: 2009
  2. SPIRIVA HANDIHALER [Suspect]
     Indication: ASTHMA
  3. NIFEDIPINE [Concomitant]
     Indication: HYPERTENSION
     Dosage: 30 MG
     Route: 048
  4. SYNTHROID [Concomitant]
     Indication: THYROID OPERATION
  5. PRILOSEC [Concomitant]
     Indication: GASTROOESOPHAGEAL REFLUX DISEASE
     Route: 048
  6. AVAPRO [Concomitant]
     Indication: HYPERTENSION
     Dosage: 300 MG
     Route: 048
  7. CALCIUM [Concomitant]
     Indication: SUPPLEMENTATION THERAPY
  8. VITAMIN D [Concomitant]
     Indication: SUPPLEMENTATION THERAPY
     Dosage: 2000 U
     Route: 048
  9. VITAMIN B12 [Concomitant]
     Indication: NEUROPATHY PERIPHERAL
  10. ASMANEX [Concomitant]
     Indication: ASTHMA
     Dosage: 2 PUF
     Route: 055
  11. PROAIR [Concomitant]
     Indication: ASTHMA
  12. ALIGN [Concomitant]
     Indication: DIVERTICULITIS
     Route: 048
  13. LEVOTHYROXINE [Concomitant]
     Indication: HYPOTHYROIDISM
     Route: 048
  14. ALBUTEROL [Concomitant]
     Route: 055
  15. CITRACAL [Concomitant]
     Route: 048
  16. NIFEDIAC [Concomitant]
     Route: 048

REACTIONS (14)
  - Sinusitis [Not Recovered/Not Resolved]
  - Dysphonia [Not Recovered/Not Resolved]
  - Dry mouth [Not Recovered/Not Resolved]
  - Headache [Recovered/Resolved]
  - Abdominal pain upper [Recovered/Resolved]
  - Staphylococcal infection [Not Recovered/Not Resolved]
  - Bronchitis [Not Recovered/Not Resolved]
  - Sinusitis [Not Recovered/Not Resolved]
  - Lymphadenopathy [Recovered/Resolved]
  - Bone pain [Not Recovered/Not Resolved]
  - Oropharyngeal pain [Not Recovered/Not Resolved]
  - Wheezing [Not Recovered/Not Resolved]
  - Cough [Not Recovered/Not Resolved]
  - Pulmonary congestion [Not Recovered/Not Resolved]
